FAERS Safety Report 5906676-1 (Version None)
Quarter: 2008Q3

REPORT INFORMATION
  Report Type: 
  Country: None (occurrence: None)
  Receive Date: 20080930
  Receipt Date: 20080919
  Transmission Date: 20090109
  Serious: Yes (Death)
  Sender: FDA-Public Use
  Company Number: TCI2008A04859

PATIENT
  Age: 57 Year
  Sex: Male

DRUGS (1)
  1. LANSAP 800 (LANSOPRAZOLE, CLARITHROMYCIN, AMOXICILLIN) (PREPARATION FO [Suspect]
     Route: 048
     Dates: start: 20060101, end: 20060201

REACTIONS (1)
  - INTERSTITIAL LUNG DISEASE [None]
